FAERS Safety Report 7438461-6 (Version None)
Quarter: 2011Q2

REPORT INFORMATION
  Report Type: 
  Country: None (occurrence: None)
  Receive Date: 20110426
  Receipt Date: 20110420
  Transmission Date: 20111010
  Serious: Yes (Other)
  Sender: FDA-Public Use
  Company Number: US-PFIZER INC-2010005413

PATIENT
  Sex: Female
  Weight: 90.7 kg

DRUGS (11)
  1. COUMADIN [Concomitant]
     Dosage: UNK
  2. ATIVAN [Concomitant]
     Dosage: 0.5 MG, AS NEEDED
  3. VICODIN [Concomitant]
     Dosage: 500 MG, AS NEEDED
  4. SUTENT [Suspect]
     Indication: RENAL CELL CARCINOMA
     Dosage: 50 MG, 1X/DAY, 4-2 CYCLE
     Route: 048
     Dates: start: 20100108
  5. POTASSIUM [Concomitant]
     Dosage: 10 MG, 1X/DAY
  6. SUTENT [Suspect]
     Indication: NEOPLASM MALIGNANT
     Dosage: 12.5MG AND 25MG (ONE CAP EACH DAILY)
  7. PAXIL [Concomitant]
     Indication: DEPRESSION
     Dosage: 40 MG, DAILY
  8. TRIAM-CO [Concomitant]
     Dosage: 37.5 MG, UNK
  9. MAXZIDE [Concomitant]
     Dosage: 37.5/25 MG DAILY
  10. NORVASC [Concomitant]
     Dosage: 10 MG, DAILY
  11. PRILOSEC [Concomitant]
     Dosage: 20 MG, 1X/DAY

REACTIONS (14)
  - IMPAIRED HEALING [None]
  - CARDIAC FAILURE CONGESTIVE [None]
  - PALPITATIONS [None]
  - DYSPNOEA [None]
  - HALLUCINATION [None]
  - PARALYSIS [None]
  - CYSTITIS [None]
  - BLOOD POTASSIUM DECREASED [None]
  - ASTHENIA [None]
  - HYPERTENSION [None]
  - PERIORBITAL OEDEMA [None]
  - JOINT SWELLING [None]
  - BONE LESION [None]
  - PLATELET DISORDER [None]
